FAERS Safety Report 5833778-0 (Version None)
Quarter: 2008Q3

REPORT INFORMATION
  Report Type: 
  Country: None (occurrence: None)
  Receive Date: 20080804
  Receipt Date: 20080804
  Transmission Date: 20090109
  Serious: Yes (Hospitalization)
  Sender: FDA-Public Use
  Company Number: None

PATIENT
  Age: 32 Year
  Sex: Female
  Weight: 95.2554 kg

DRUGS (2)
  1. CELEXA [Suspect]
     Indication: ANXIETY
     Dosage: 40MG DAILY PO
     Route: 048
     Dates: start: 20060803, end: 20080620
  2. CELEXA [Suspect]
     Indication: DEPRESSION
     Dosage: 40MG DAILY PO
     Route: 048
     Dates: start: 20060803, end: 20080620

REACTIONS (3)
  - ROAD TRAFFIC ACCIDENT [None]
  - SOMNAMBULISM [None]
  - SOMNOLENCE [None]
